FAERS Safety Report 5455118-1 (Version None)
Quarter: 2007Q3

REPORT INFORMATION
  Report Type: 
  Country: None (occurrence: None)
  Receive Date: 20070914
  Receipt Date: 20070904
  Transmission Date: 20080115
  Serious: Yes (Hospitalization)
  Sender: FDA-Public Use
  Company Number: 2007-163162-NL

PATIENT
  Sex: Male

DRUGS (6)
  1. DEXAMETHASONE 0.5MG TAB [Suspect]
     Indication: MULTIPLE MYELOMA
     Dosage: 40 MG
     Dates: start: 20070518, end: 20070730
  2. THALIDOMIDE [Concomitant]
  3. PANTOPRAZOLE SODIUM [Concomitant]
  4. ISOSORBIDE MONONITRATE [Concomitant]
  5. ATENOLOL [Concomitant]
  6. MOLSIDOMINE [Concomitant]

REACTIONS (1)
  - DIVERTICULITIS [None]
